FAERS Safety Report 10571683 (Version 3)
Quarter: 2016Q2

REPORT INFORMATION
  Report Type: Spontaneous
  Country: US (occurrence: US)
  Receive Date: 20141107
  Receipt Date: 20160531
  Transmission Date: 20160815
  Serious: Yes (Hospitalization, Other)
  Sender: FDA-Public Use
  Company Number: US-BAYER-2014-163641

PATIENT
  Age: 38 Year
  Sex: Female

DRUGS (16)
  1. DILAUDID [Concomitant]
     Active Substance: HYDROMORPHONE HYDROCHLORIDE
  2. ZOFRAN [Concomitant]
     Active Substance: ONDANSETRON HYDROCHLORIDE
  3. FLONASE [Concomitant]
     Active Substance: FLUTICASONE PROPIONATE
  4. MIRENA [Suspect]
     Active Substance: LEVONORGESTREL
     Indication: MENORRHAGIA
  5. ADVAIR DISKUS [Concomitant]
     Active Substance: FLUTICASONE PROPIONATE\SALMETEROL XINAFOATE
  6. MIDOL [ACETYLSALICYLIC ACID,CAFFEINE,CINNAMEDRINE] [Concomitant]
  7. CEFTRIAXONE. [Concomitant]
     Active Substance: CEFTRIAXONE
  8. MIRENA [Suspect]
     Active Substance: LEVONORGESTREL
     Indication: CONTRACEPTION
     Dosage: 20 MCG/24HR, CONT
     Route: 015
     Dates: start: 20080103, end: 20100324
  9. CELEBREX [Concomitant]
     Active Substance: CELECOXIB
  10. DOXYCYCLINE. [Concomitant]
     Active Substance: DOXYCYCLINE
  11. TORADOL [Concomitant]
     Active Substance: KETOROLAC TROMETHAMINE
  12. KEFLEX [Concomitant]
     Active Substance: CEPHALEXIN
  13. PERCOCET [Concomitant]
     Active Substance: ACETAMINOPHEN\OXYCODONE HYDROCHLORIDE
  14. MIRALAX [Concomitant]
     Active Substance: POLYETHYLENE GLYCOL 3350
  15. VICODIN [Concomitant]
     Active Substance: ACETAMINOPHEN\HYDROCODONE BITARTRATE
  16. YAZ [Concomitant]
     Active Substance: DROSPIRENONE\ETHINYL ESTRADIOL

REACTIONS (6)
  - Uterine perforation [None]
  - Adnexa uteri cyst [None]
  - Infection [None]
  - Injury [None]
  - Oophorectomy [None]
  - Pain [None]

NARRATIVE: CASE EVENT DATE: 201003
